FAERS Safety Report 18262520 (Version 1)
Quarter: 2020Q3

REPORT INFORMATION
  Report Type: Spontaneous
  Country: US (occurrence: US)
  Receive Date: 20200913
  Receipt Date: 20200913
  Transmission Date: 20201103
  Serious: No
  Sender: FDA-Public Use
  Company Number: None

PATIENT
  Age: 65 Year
  Sex: Female
  Weight: 70.2 kg

DRUGS (4)
  1. ZYRTEC?D ALLERGY AND CONGESTION [Concomitant]
     Active Substance: CETIRIZINE HYDROCHLORIDE\PSEUDOEPHEDRINE HYDROCHLORIDE
  2. NATURE?THROID [Suspect]
     Active Substance: THYROID, PORCINE
     Indication: HYPOTHYROIDISM
     Dosage: ?          QUANTITY:100 TABLET(S);?
     Route: 048
  3. VITAMIN D [Concomitant]
     Active Substance: VITAMIN D NOS
  4. IBUPROFEN. [Concomitant]
     Active Substance: IBUPROFEN

REACTIONS (10)
  - Glossodynia [None]
  - Recalled product administered [None]
  - Chills [None]
  - Oral herpes [None]
  - Feeling abnormal [None]
  - Pain in extremity [None]
  - Neck pain [None]
  - Headache [None]
  - Fatigue [None]
  - Weight increased [None]

NARRATIVE: CASE EVENT DATE: 20200826
